FAERS Safety Report 8154877-7 (Version None)
Quarter: 2012Q1

REPORT INFORMATION
  Report Type: 
  Country: None (occurrence: None)
  Receive Date: 20120221
  Receipt Date: 20120214
  Transmission Date: 20120608
  Serious: Yes (Other)
  Sender: FDA-Public Use
  Company Number: PHEH2012US003929

PATIENT
  Sex: Female

DRUGS (9)
  1. DICYCLOMINE [Concomitant]
     Dosage: 20 MG, UNK
  2. GILENYA [Suspect]
     Indication: MULTIPLE SCLEROSIS
     Dosage: 0.5 MG, QD
     Route: 048
     Dates: start: 20110607
  3. AMANTADINE HCL [Concomitant]
     Dosage: 10 MG, UNK
  4. METOPROLOL SUCCINATE [Concomitant]
  5. NAMENDA [Concomitant]
     Dosage: 10 MG, UNK
  6. CYMBALTA [Concomitant]
     Dosage: 60 MG, UNK
  7. ADDERALL 5 [Concomitant]
     Dosage: 20 MG, UNK
  8. ASPIRIN [Concomitant]
     Dosage: 81 MG, UNK
  9. CLONIDINE HCL [Concomitant]
     Dosage: 0.1 MG, UNK

REACTIONS (4)
  - RASH [None]
  - HYPOAESTHESIA [None]
  - FALL [None]
  - LOSS OF CONSCIOUSNESS [None]
